FAERS Safety Report 19202537 (Version 1)
Quarter: 2021Q2

REPORT INFORMATION
  Report Type: Spontaneous
  Country: US (occurrence: US)
  Receive Date: 20210502
  Receipt Date: 20210502
  Transmission Date: 20210717
  Serious: No
  Sender: FDA-Public Use
  Company Number: NVSC2021US097967

PATIENT
  Age: 75 Year
  Sex: Female

DRUGS (1)
  1. VOLTAREN [Suspect]
     Active Substance: DICLOFENAC SODIUM
     Indication: ARTHRITIS
     Dosage: UNK
     Route: 065
     Dates: start: 20210415, end: 20210422

REACTIONS (7)
  - Application site urticaria [Unknown]
  - Medication error [Unknown]
  - Blood pressure increased [Unknown]
  - Application site erythema [Unknown]
  - Condition aggravated [Unknown]
  - Application site acne [Unknown]
  - Application site rash [Unknown]

NARRATIVE: CASE EVENT DATE: 20210424
